FAERS Safety Report 6897454-8 (Version None)
Quarter: 2010Q3

REPORT INFORMATION
  Report Type: 
  Country: None (occurrence: None)
  Receive Date: 20100802
  Receipt Date: 20100727
  Transmission Date: 20110219
  Serious: Yes (Death, Other)
  Sender: FDA-Public Use
  Company Number: US-AMGEN-QUU398257

PATIENT
  Sex: Male
  Weight: 102.2 kg

DRUGS (12)
  1. NPLATE [Suspect]
     Indication: IDIOPATHIC THROMBOCYTOPENIC PURPURA
     Dates: start: 20081020, end: 20090610
  2. AVASTIN [Concomitant]
  3. CAMPTOSAR [Concomitant]
  4. LEUCOVORIN CALCIUM [Concomitant]
  5. FLUOROURACIL [Concomitant]
  6. NEUPOGEN [Concomitant]
  7. ALOXI [Concomitant]
     Route: 040
  8. DECADRON [Concomitant]
  9. BENADRYL [Concomitant]
  10. SOLU-MEDROL [Concomitant]
  11. TPN ELECTROLYTES IN PLASTIC CONTAINER [Concomitant]
  12. OXALIPLATIN [Concomitant]

REACTIONS (24)
  - ABDOMINAL PAIN [None]
  - BACTERIAL INFECTION [None]
  - BLOOD ELECTROLYTES ABNORMAL [None]
  - COLON CANCER METASTATIC [None]
  - CONSTIPATION [None]
  - DIARRHOEA [None]
  - DYSARTHRIA [None]
  - ELECTROCARDIOGRAM ST SEGMENT ABNORMAL [None]
  - HAEMATEMESIS [None]
  - HALLUCINATION [None]
  - HEPATIC CIRRHOSIS [None]
  - HYPOAESTHESIA [None]
  - HYPOTENSION [None]
  - LACTIC ACIDOSIS [None]
  - MALIGNANT ASCITES [None]
  - MALNUTRITION [None]
  - METASTASES TO LIVER [None]
  - METASTASES TO LUNG [None]
  - METASTASES TO PERITONEUM [None]
  - MUSCLE SPASMS [None]
  - NAUSEA [None]
  - NEUTROPENIA [None]
  - PERITONITIS BACTERIAL [None]
  - VOMITING [None]
